FAERS Safety Report 4423779-1 (Version None)
Quarter: 2004Q3

REPORT INFORMATION
  Report Type: 
  Country: None (occurrence: None)
  Receive Date: 20040719
  Receipt Date: 20040429
  Transmission Date: 20050211
  Serious: No
  Sender: FDA-Public Use
  Company Number: A03200401370

PATIENT
  Age: 65 Year
  Sex: Male
  Weight: 136.0791 kg

DRUGS (2)
  1. UROXATRAL [Suspect]
     Indication: BLADDER DISORDER
     Dosage: 10 MG OD; ORAL
     Route: 048
     Dates: start: 20040401
  2. AMLODIPINE + BENAZEPRIL [Concomitant]

REACTIONS (1)
  - CONSTIPATION [None]
